FAERS Safety Report 6092197-5 (Version None)
Quarter: 2009Q1

REPORT INFORMATION
  Report Type: 
  Country: None (occurrence: None)
  Receive Date: 20090225
  Receipt Date: 20090219
  Transmission Date: 20090719
  Serious: Yes (Life-Threatening, Hospitalization, Disabling)
  Sender: FDA-Public Use
  Company Number: JP-AVENTIS-200910148JP

PATIENT
  Age: 63 Year
  Sex: Male

DRUGS (7)
  1. LANTUS [Suspect]
     Indication: DIABETES MELLITUS
     Dosage: DOSE: 2 UNITS
     Route: 058
     Dates: start: 20081226, end: 20081230
  2. LANTUS [Suspect]
     Dosage: DOSE: 4 UNITS
     Route: 058
     Dates: start: 20090115, end: 20090116
  3. LANTUS [Suspect]
     Dosage: DOSE: 8 UNITS
     Route: 058
     Dates: start: 20090117, end: 20090118
  4. NOVORAPID [Suspect]
     Indication: DIABETES MELLITUS
     Dosage: DOSE: 3 UNTS
     Route: 058
     Dates: start: 20081226, end: 20081230
  5. OKIRICON [Concomitant]
     Indication: CEREBRAL INFARCTION
     Route: 042
     Dates: start: 20081227, end: 20081230
  6. OMEPRAL [Concomitant]
     Indication: GASTRITIS
     Route: 042
     Dates: start: 20081231, end: 20081231
  7. HUMULIN R [Concomitant]
     Indication: DIABETES MELLITUS
     Dosage: DOSE: 2-20 UNITS
     Route: 058
     Dates: start: 20090113

REACTIONS (3)
  - DIABETIC KETOACIDOSIS [None]
  - RENAL IMPAIRMENT [None]
  - SHOCK [None]
